FAERS Safety Report 13941307 (Version 3)
Quarter: 2017Q4

REPORT INFORMATION
  Report Type: Report from Study
  Country: US (occurrence: US)
  Receive Date: 20170906
  Receipt Date: 20171011
  Transmission Date: 20180320
  Serious: Yes (Death, Other)
  Sender: FDA-Public Use
  Company Number: US-AMGEN-USASL2017134450

PATIENT
  Age: 57 Year
  Sex: Female
  Weight: 52.21 kg

DRUGS (6)
  1. PROLIA [Suspect]
     Active Substance: DENOSUMAB
     Indication: OSTEOPOROSIS POSTMENOPAUSAL
     Dosage: 60 MG, Q6MO
     Route: 058
     Dates: start: 20120604, end: 20170330
  2. CALCIUM [Concomitant]
     Active Substance: CALCIUM
     Indication: OSTEOPOROSIS
     Dosage: UNK
  3. NORCO [Concomitant]
     Active Substance: ACETAMINOPHEN\HYDROCODONE BITARTRATE
     Indication: OSTEOARTHRITIS
  4. PROLIA [Suspect]
     Active Substance: DENOSUMAB
     Indication: OSTEOPOROTIC FRACTURE
  5. VITAMIN D [Concomitant]
     Active Substance: CHOLECALCIFEROL
     Indication: OSTEOPOROSIS
     Dosage: UNK
  6. TYLENOL [Concomitant]
     Active Substance: ACETAMINOPHEN
     Indication: OSTEOARTHRITIS
     Dosage: UNK UNK, AS NECESSARY

REACTIONS (12)
  - Death [Fatal]
  - Ankle fracture [Recovering/Resolving]
  - Back pain [Unknown]
  - Neuroendocrine carcinoma of the skin [Unknown]
  - Skin hyperpigmentation [Unknown]
  - Foot deformity [Unknown]
  - Fall [Unknown]
  - Humerus fracture [Recovering/Resolving]
  - Disability [Not Recovered/Not Resolved]
  - Musculoskeletal pain [Unknown]
  - Hyperkeratosis [Unknown]
  - General physical health deterioration [Unknown]

NARRATIVE: CASE EVENT DATE: 201601
